FAERS Safety Report 24414821 (Version 1)
Quarter: 2024Q4

REPORT INFORMATION
  Report Type: Spontaneous
  Country: IN (occurrence: IN)
  Receive Date: 20241009
  Receipt Date: 20241009
  Transmission Date: 20250115
  Serious: Yes (Hospitalization, Other)
  Sender: VIWIT PHARMACEUTICAL
  Company Number: IN-VIWITPHARMA-2024VWTLIT00010

PATIENT
  Sex: Male

DRUGS (1)
  1. TOPIRAMATE [Suspect]
     Active Substance: TOPIRAMATE
     Indication: Alcoholic seizure

REACTIONS (1)
  - Eosinophilic pneumonia acute [Recovered/Resolved]
